FAERS Safety Report 20604990 (Version 1)
Quarter: 2022Q1

REPORT INFORMATION
  Report Type: Spontaneous
  Country: ZA (occurrence: ZA)
  Receive Date: 20220317
  Receipt Date: 20220317
  Transmission Date: 20220423
  Serious: Yes (Other)
  Sender: FDA-Public Use
  Company Number: ZA-ABBVIE-22K-143-4319542-00

PATIENT
  Age: 58 Year
  Sex: Female

DRUGS (1)
  1. EPILIM [Suspect]
     Active Substance: VALPROATE SODIUM
     Indication: Generalised tonic-clonic seizure
     Route: 065

REACTIONS (6)
  - Generalised tonic-clonic seizure [Unknown]
  - Anal incontinence [Unknown]
  - Product physical issue [Unknown]
  - Urinary incontinence [Unknown]
  - Tremor [Unknown]
  - Drug ineffective [Unknown]
